FAERS Safety Report 15391638 (Version 1)
Quarter: 2018Q3

REPORT INFORMATION
  Report Type: Spontaneous
  Country: US (occurrence: US)
  Receive Date: 20180917
  Receipt Date: 20180917
  Transmission Date: 20181010
  Serious: No
  Sender: FDA-Public Use
  Company Number: US-GLENMARK PHARMACEUTICALS-2018GMK036821

PATIENT

DRUGS (2)
  1. MUPIROCIN. [Suspect]
     Active Substance: MUPIROCIN
     Indication: SKIN DISORDER
     Dosage: UNK
     Route: 061
     Dates: start: 2014, end: 2014
  2. CLOTRIMAZOLE. [Suspect]
     Active Substance: CLOTRIMAZOLE
     Indication: SKIN DISORDER
     Dosage: UNK
     Route: 061
     Dates: start: 2014, end: 2014

REACTIONS (2)
  - Adverse event [Unknown]
  - Drug ineffective [Unknown]
